FAERS Safety Report 8737344 (Version 2)
Quarter: 2013Q4

REPORT INFORMATION
  Report Type: Spontaneous
  Country: US (occurrence: US)
  Receive Date: 20120822
  Receipt Date: 20131105
  Transmission Date: 20140711
  Serious: Yes (Other)
  Sender: FDA-Public Use
  Company Number: US-MERCK-1208USA004255

PATIENT
  Sex: Female
  Weight: 50.3 kg

DRUGS (2)
  1. TEMODAR [Suspect]
     Indication: BRAIN NEOPLASM MALIGNANT
     Dosage: 100 MG, 21 IN 28 DAYS
     Route: 048
     Dates: start: 20110707
  2. THALOMID [Concomitant]
     Indication: BRAIN NEOPLASM MALIGNANT
     Dosage: UNK

REACTIONS (2)
  - Nervousness [Unknown]
  - Treatment noncompliance [Unknown]
